FAERS Safety Report 8458079-6 (Version None)
Quarter: 2012Q2

REPORT INFORMATION
  Report Type: 
  Country: None (occurrence: None)
  Receive Date: 20120622
  Receipt Date: 20120613
  Transmission Date: 20120825
  Serious: Yes (Other)
  Sender: FDA-Public Use
  Company Number: GB-JNJFOC-20120607552

PATIENT
  Sex: Male

DRUGS (3)
  1. ANTI-HYPERTENSIVE MEDICATION [Concomitant]
     Route: 065
  2. SIMPONI [Suspect]
     Indication: PRODUCT USED FOR UNKNOWN INDICATION
     Route: 058
  3. SIMPONI [Suspect]
     Route: 058
     Dates: start: 20120526

REACTIONS (1)
  - ADVERSE EVENT [None]
